FAERS Safety Report 7591548-X (Version None)
Quarter: 2011Q3

REPORT INFORMATION
  Report Type: 
  Country: None (occurrence: None)
  Receive Date: 20110701
  Receipt Date: 20110701
  Transmission Date: 20111222
  Serious: No
  Sender: FDA-Public Use
  Company Number: None

PATIENT
  Sex: Male

DRUGS (2)
  1. PEGASYS [Suspect]
     Indication: HEPATITIS C
     Dosage: 180 MCG WEEKLY SQ
     Route: 058
     Dates: start: 20100930
  2. RIBASPHERE [Suspect]
     Dosage: 1000 MG DAILY PO
     Route: 048
     Dates: start: 20100930

REACTIONS (4)
  - MEMORY IMPAIRMENT [None]
  - DEPRESSION [None]
  - ALOPECIA [None]
  - SCREAMING [None]
